FAERS Safety Report 23233216 (Version 2)
Quarter: 2023Q4

REPORT INFORMATION
  Report Type: Spontaneous
  Country: PK (occurrence: PK)
  Receive Date: 20231128
  Receipt Date: 20231226
  Transmission Date: 20240109
  Serious: Yes (Other)
  Sender: FDA-Public Use
  Company Number: PK-PFIZER INC-PV202300166440

PATIENT
  Age: 44 Year
  Sex: Female

DRUGS (12)
  1. ENBREL [Suspect]
     Active Substance: ETANERCEPT
     Indication: Rheumatoid arthritis
     Dosage: 50 MILLIGRAM, QWK
     Route: 058
     Dates: start: 20230921
  2. SULFASALAZINE [Concomitant]
     Active Substance: SULFASALAZINE
     Dosage: 500 MILLIGRAM, BID
  3. METHOTREXATE [Concomitant]
     Active Substance: METHOTREXATE
     Dosage: UNK, 25MG, 1 AND A HALF TAB EVERY FRIDAY AND 1 TAB EVERY SATURDAY
  4. Rotec [Concomitant]
     Dosage: 75 MILLIGRAM, BID
  5. NAPROXEN [Concomitant]
     Active Substance: NAPROXEN
     Dosage: 500 MILLIGRAM, BID
  6. Rapicort [Concomitant]
     Dosage: 7.5 MILLIGRAM, QD
  7. Rapicort [Concomitant]
     Dosage: 5 MILLIGRAM, QD
  8. Cara [Concomitant]
     Dosage: 1 DOSAGE FORM, QD
  9. QALSAN D [Concomitant]
     Dosage: 1 DOSAGE FORM, QD
  10. FOLIC ACID [Concomitant]
     Active Substance: FOLIC ACID
     Dosage: 1 DOSAGE FORM, QWK (SUNDAY)
  11. ACECLOFENAC [Concomitant]
     Active Substance: ACECLOFENAC
     Dosage: 1 DOSAGE FORM, QD (1 DAILY)
  12. PANADOL [Concomitant]
     Active Substance: ACETAMINOPHEN
     Dosage: UNK

REACTIONS (4)
  - Blood pressure increased [Recovered/Resolved]
  - Pain [Unknown]
  - Abdominal pain upper [Unknown]
  - Therapeutic product effect incomplete [Unknown]
